FAERS Safety Report 6421071-7 (Version None)
Quarter: 2009Q4

REPORT INFORMATION
  Report Type: 
  Country: None (occurrence: None)
  Receive Date: 20091030
  Receipt Date: 20091020
  Transmission Date: 20100525
  Serious: Yes (Hospitalization)
  Sender: FDA-Public Use
  Company Number: US-JNJFOC-20090905865

PATIENT
  Sex: Female
  Weight: 76.66 kg

DRUGS (4)
  1. REMICADE [Suspect]
     Route: 042
  2. REMICADE [Suspect]
     Route: 042
  3. REMICADE [Suspect]
     Indication: CROHN'S DISEASE
     Dosage: DOSE REPORTED AS 4 VIALS
     Route: 042
  4. DIFLUCAN [Concomitant]

REACTIONS (6)
  - FUNGAL OESOPHAGITIS [None]
  - IMPETIGO [None]
  - INCISION SITE INFECTION [None]
  - PHARYNGITIS STREPTOCOCCAL [None]
  - SURGERY [None]
  - SWELLING FACE [None]
